FAERS Safety Report 10457136 (Version 1)
Quarter: 2014Q3

REPORT INFORMATION
  Report Type: Spontaneous
  Country: CN (occurrence: CN)
  Receive Date: 20140916
  Receipt Date: 20140916
  Transmission Date: 20150326
  Serious: Yes (Hospitalization)
  Sender: FDA-Public Use
  Company Number: PHHY2014CN116112

PATIENT
  Age: 51 Year
  Sex: Male

DRUGS (4)
  1. VALPROIC ACID. [Suspect]
     Active Substance: VALPROIC ACID
     Indication: EPILEPSY
     Dosage: 1200 MG, DAY
     Route: 042
  2. PENFILL 20R [Concomitant]
     Dosage: 18 U, QD18
  3. NOVOMIX 30 [Concomitant]
     Active Substance: INSULIN ASPART
  4. PENFILL 20R [Concomitant]
     Dosage: 20 U, QD7

REACTIONS (7)
  - Ileus paralytic [Recovered/Resolved]
  - Gastrointestinal sounds abnormal [Recovered/Resolved]
  - Abdominal distension [Recovered/Resolved]
  - Vomiting [Recovered/Resolved]
  - Gastric hypomotility [Recovered/Resolved]
  - Tenderness [Recovered/Resolved]
  - Ascites [Recovered/Resolved]
